FAERS Safety Report 5481917-6 (Version None)
Quarter: 2007Q4

REPORT INFORMATION
  Report Type: 
  Country: None (occurrence: None)
  Receive Date: 20071004
  Receipt Date: 20070919
  Transmission Date: 20080405
  Serious: Yes (Other)
  Sender: FDA-Public Use
  Company Number: 2007BI018344

PATIENT
  Age: 52 Year
  Sex: Female
  Weight: 70.7611 kg

DRUGS (5)
  1. NATALIZUMAB [Suspect]
     Indication: MULTIPLE SCLEROSIS
     Dosage: IV
     Route: 042
     Dates: start: 20070420
  2. PHENOBARBITAL TAB [Concomitant]
  3. PROZAC [Concomitant]
  4. PROVIGIL [Concomitant]
  5. ADVIL LIQUI-GELS [Concomitant]

REACTIONS (1)
  - BREAST CANCER [None]
